FAERS Safety Report 8616038-4 (Version None)
Quarter: 2012Q3

REPORT INFORMATION
  Report Type: 
  Country: None (occurrence: None)
  Receive Date: 20120823
  Receipt Date: 20120817
  Transmission Date: 20120928
  Serious: No
  Sender: FDA-Public Use
  Company Number: US-PFIZER INC-2012181877

PATIENT
  Age: 55 Year
  Sex: Female
  Weight: 107 kg

DRUGS (6)
  1. DIOVAN [Concomitant]
     Dosage: 80 MG, UNK
  2. VITAMIN B-12 [Concomitant]
  3. SUTENT [Suspect]
     Indication: METASTATIC RENAL CELL CARCINOMA
     Dosage: 50 MG, (FIRST 42 DAY CYCLE)
     Dates: start: 20120717
  4. KEPPRA [Concomitant]
     Dosage: TWICE DAILY
  5. SIMVASTATIN [Concomitant]
  6. VITAMIN D [Concomitant]

REACTIONS (16)
  - DYSGEUSIA [None]
  - VITAMIN D DECREASED [None]
  - ALOPECIA [None]
  - DIARRHOEA [None]
  - ABDOMINAL DISCOMFORT [None]
  - WEIGHT DECREASED [None]
  - NEUTROPHIL COUNT DECREASED [None]
  - GLOSSODYNIA [None]
  - DYSPEPSIA [None]
  - BLISTER [None]
  - WHITE BLOOD CELL COUNT DECREASED [None]
  - RASH [None]
  - FATIGUE [None]
  - BLOOD THYROID STIMULATING HORMONE INCREASED [None]
  - BLOOD PRESSURE INCREASED [None]
  - SINUS HEADACHE [None]
